FAERS Safety Report 5198974-7 (Version None)
Quarter: 2006Q4

REPORT INFORMATION
  Report Type: 
  Country: None (occurrence: None)
  Receive Date: 20061016
  Receipt Date: 20060731
  Transmission Date: 20070319
  Serious: No
  Sender: FDA-Public Use
  Company Number: 2006SP002844

PATIENT
  Age: 45 Year
  Sex: Female
  Weight: 63.5036 kg

DRUGS (2)
  1. LUNESTA [Suspect]
     Indication: INSOMNIA
     Dosage: 3 MG; HS; ORAL
     Route: 048
     Dates: start: 20060718
  2. WELLBUTRIN [Suspect]
     Indication: SMOKING CESSATION THERAPY
     Dates: start: 20060701

REACTIONS (3)
  - ANXIETY [None]
  - DYSGEUSIA [None]
  - FEELING OF DESPAIR [None]
